FAERS Safety Report 10274150 (Version 1)
Quarter: 2014Q3

REPORT INFORMATION
  Report Type: Spontaneous
  Country: FR (occurrence: FR)
  Receive Date: 20140702
  Receipt Date: 20140702
  Transmission Date: 20150326
  Serious: Yes (Death, Hospitalization)
  Sender: FDA-Public Use
  Company Number: FR-SA-2014SA087285

PATIENT
  Age: 77 Year
  Sex: Female

DRUGS (5)
  1. XELODA [Suspect]
     Active Substance: CAPECITABINE
     Indication: ADENOCARCINOMA OF COLON
     Route: 048
     Dates: start: 20110512, end: 20110525
  2. FOLFOX-4 (FLUOROURACIL, FOLINIC ACID, OXALIPLATIN) [Concomitant]
     Active Substance: FLUOROURACIL\LEUCOVORIN\OXALIPLATIN
     Dates: start: 20110427
  3. OXALIPLATIN. [Suspect]
     Active Substance: OXALIPLATIN
     Indication: ADENOCARCINOMA OF COLON
     Dosage: FREQUENCY: CYCLIC
     Route: 065
     Dates: start: 20110512
  4. MOPRAL [Concomitant]
     Active Substance: OMEPRAZOLE SODIUM
  5. AVASTIN [Suspect]
     Active Substance: BEVACIZUMAB
     Indication: ADENOCARCINOMA OF COLON
     Dosage: FREQUENCY: CYCLIC
     Route: 042
     Dates: start: 20110512

REACTIONS (15)
  - Leukopenia [Fatal]
  - Cyanosis [Fatal]
  - Discomfort [Unknown]
  - Asthenia [Unknown]
  - Hyperglycaemia [Fatal]
  - Mouth ulceration [Unknown]
  - Diarrhoea [Unknown]
  - Dyspnoea [Fatal]
  - Lymphocyte count decreased [Fatal]
  - General physical health deterioration [Unknown]
  - Bradycardia [Fatal]
  - Renal failure acute [Fatal]
  - Neutrophil count decreased [Fatal]
  - Vomiting [Unknown]
  - Blood urea increased [Unknown]

NARRATIVE: CASE EVENT DATE: 20110522
